FAERS Safety Report 5151186-5 (Version None)
Quarter: 2006Q4

REPORT INFORMATION
  Report Type: 
  Country: None (occurrence: None)
  Receive Date: 20061114
  Receipt Date: 20061114
  Transmission Date: 20070319
  Serious: Yes (Life-Threatening, Disabling)
  Sender: FDA-Public Use
  Company Number: None

PATIENT
  Age: 50 Year
  Sex: Male
  Weight: 62.7778 kg

DRUGS (1)
  1. COMBIVIR [Suspect]
     Indication: ANTIVIRAL PROPHYLAXIS
     Dosage: 150MG/300MG  1 TABLET BID  PO
     Route: 048
     Dates: start: 20060214, end: 20060821

REACTIONS (1)
  - NEUTROPHIL COUNT DECREASED [None]
